FAERS Safety Report 15212968 (Version 1)
Quarter: 2018Q3

REPORT INFORMATION
  Report Type: Spontaneous
  Country: US (occurrence: US)
  Receive Date: 20180730
  Receipt Date: 20180730
  Transmission Date: 20181010
  Serious: Yes (Death, Hospitalization)
  Sender: FDA-Public Use
  Company Number: US-ROCHE-2157907

PATIENT
  Age: 64 Year
  Sex: Male

DRUGS (20)
  1. PROGRAF [Concomitant]
     Active Substance: TACROLIMUS\TACROLIMUS ANHYDROUS
  2. ATIVAN [Concomitant]
     Active Substance: LORAZEPAM
  3. ROBITUSSIN (GUAIFENESIN) [Concomitant]
     Active Substance: GUAIFENESIN
  4. BACTRIM [Concomitant]
     Active Substance: SULFAMETHOXAZOLE\TRIMETHOPRIM
  5. CELLCEPT [Suspect]
     Active Substance: MYCOPHENOLATE MOFETIL\MYCOPHENOLATE MOFETIL HYDROCHLORIDE
     Indication: PRODUCT USED FOR UNKNOWN INDICATION
     Route: 048
  6. VITAMIN D3 [Concomitant]
     Active Substance: CHOLECALCIFEROL
  7. LISINOPRIL. [Concomitant]
     Active Substance: LISINOPRIL
  8. ZOVIRAX [Concomitant]
     Active Substance: ACYCLOVIR
  9. ZITHROMAX [Concomitant]
     Active Substance: AZITHROMYCIN DIHYDRATE
  10. VALIUM [Concomitant]
     Active Substance: DIAZEPAM
  11. LASIX [Concomitant]
     Active Substance: FUROSEMIDE
  12. SINGULAIR [Concomitant]
     Active Substance: MONTELUKAST SODIUM
  13. SYMBICORT [Concomitant]
     Active Substance: BUDESONIDE\FORMOTEROL FUMARATE DIHYDRATE
  14. HUMALOG [Concomitant]
     Active Substance: INSULIN LISPRO
  15. MS CONTIN [Concomitant]
     Active Substance: MORPHINE SULFATE
  16. ALBUTEROL. [Concomitant]
     Active Substance: ALBUTEROL
  17. ATROVENT [Concomitant]
     Active Substance: IPRATROPIUM BROMIDE
  18. COMBIVENT RESPIMAT [Concomitant]
     Active Substance: ALBUTEROL SULFATE\IPRATROPIUM BROMIDE
  19. PROTONIX (OMEPRAZOLE) [Concomitant]
     Active Substance: OMEPRAZOLE
  20. MS IR [Concomitant]
     Active Substance: MORPHINE SULFATE

REACTIONS (8)
  - Death [Fatal]
  - Blood test abnormal [Unknown]
  - Dyspnoea [Unknown]
  - Palpitations [Unknown]
  - Tachycardia [Unknown]
  - Atrial tachycardia [Unknown]
  - Graft versus host disease in lung [Unknown]
  - Aspergillus infection [Unknown]

NARRATIVE: CASE EVENT DATE: 20180325
